FAERS Safety Report 14245218 (Version 4)
Quarter: 2018Q2

REPORT INFORMATION
  Report Type: Spontaneous
  Country: JP (occurrence: JP)
  Receive Date: 20171202
  Receipt Date: 20180414
  Transmission Date: 20180711
  Serious: Yes (Disabling, Other)
  Sender: FDA-Public Use
  Company Number: JP-AMGEN-JPNSP2017179930

PATIENT
  Age: 74 Year
  Sex: Male
  Weight: 64 kg

DRUGS (6)
  1. RANMARK [Suspect]
     Active Substance: DENOSUMAB
     Dosage: 120 MG, QMO
     Route: 065
     Dates: start: 20140728, end: 20151102
  2. RANMARK [Suspect]
     Active Substance: DENOSUMAB
     Dosage: 120 MG, QMO
     Route: 065
     Dates: start: 20160106, end: 20160404
  3. DENOTAS [Concomitant]
     Active Substance: CALCIUM CARBONATE\CHOLECALCIFEROL\MAGNESIUM CARBONATE
     Dosage: 2 DF, QD
     Route: 065
  4. RANMARK [Suspect]
     Active Substance: DENOSUMAB
     Indication: METASTASES TO BONE
     Dosage: 120 MG, UNK
     Route: 058
     Dates: start: 20140501, end: 20140526
  5. XTANDI [Concomitant]
     Active Substance: ENZALUTAMIDE
     Dosage: 4 DF, QD
     Route: 065
  6. HARNAL [Concomitant]
     Active Substance: TAMSULOSIN HYDROCHLORIDE
     Dosage: 0.2 MG, QD
     Route: 065

REACTIONS (3)
  - Osteonecrosis of jaw [Not Recovered/Not Resolved]
  - Tooth disorder [Unknown]
  - Flushing [Unknown]

NARRATIVE: CASE EVENT DATE: 201505
